FAERS Safety Report 5284122-1 (Version None)
Quarter: 2007Q2

REPORT INFORMATION
  Report Type: 
  Country: None (occurrence: None)
  Receive Date: 20070403
  Receipt Date: 20070320
  Transmission Date: 20071010
  Serious: Yes (Other)
  Sender: FDA-Public Use
  Company Number: US-JNJFOC-20070203343

PATIENT
  Sex: Male
  Weight: 97.98 kg

DRUGS (16)
  1. REMICADE [Suspect]
     Route: 042
  2. REMICADE [Suspect]
     Indication: COLITIS ULCERATIVE
     Route: 042
  3. PREDNISONE [Suspect]
     Indication: COLITIS ULCERATIVE
  4. LIPITOR [Concomitant]
  5. TRICOR [Concomitant]
  6. ASACOL [Concomitant]
     Dosage: 400 MG, FOUR TABLETS
  7. MERCAPTOPURINE [Concomitant]
  8. NORVASC [Concomitant]
  9. ENTOCORT EC [Concomitant]
     Dosage: 3 MG, THREE IN THE EVENING
  10. B6 [Concomitant]
  11. FOLIC ACID [Concomitant]
  12. B12 [Concomitant]
  13. VITAMIN E [Concomitant]
  14. GARLIC [Concomitant]
  15. ASCORBIC ACID [Concomitant]
  16. MULTI-VITAMIN [Concomitant]

REACTIONS (2)
  - CHOROIDAL DETACHMENT [None]
  - MACULAR OEDEMA [None]
